FAERS Safety Report 9145579 (Version 2)
Quarter: 2013Q1

REPORT INFORMATION
  Report Type: Spontaneous
  Country: US (occurrence: US)
  Receive Date: 20130307
  Receipt Date: 20130313
  Transmission Date: 20140127
  Serious: No
  Sender: FDA-Public Use
  Company Number: US-PFIZER INC-2013075060

PATIENT
  Age: 63 Year
  Sex: Female
  Weight: 64.4 kg

DRUGS (4)
  1. PROTONIX [Suspect]
     Indication: GASTROOESOPHAGEAL REFLUX DISEASE
     Dosage: 40 MG, DAILY
     Dates: start: 2007
  2. QUETIAPINE FUMARATE [Suspect]
     Indication: BIPOLAR DISORDER
     Dosage: 400 MG, DAILY
     Dates: start: 201210
  3. SEROQUEL [Suspect]
     Indication: BIPOLAR DISORDER
     Dosage: 400 MG, DAILY
     Dates: start: 2002, end: 201210
  4. OXCARBAZEPINE [Concomitant]
     Indication: BIPOLAR DISORDER
     Dosage: 300 MG, 2X/DAY

REACTIONS (4)
  - Drug ineffective [Unknown]
  - Amnesia [Unknown]
  - Stress [Unknown]
  - Panic attack [Unknown]
